FAERS Safety Report 16918734 (Version 2)
Quarter: 2019Q4

REPORT INFORMATION
  Report Type: Spontaneous
  Country: AT (occurrence: AT)
  Receive Date: 20191015
  Receipt Date: 20191107
  Transmission Date: 20200122
  Serious: Yes (Hospitalization, Other)
  Sender: FDA-Public Use
  Company Number: AT-OTSUKA-2019_035066

PATIENT
  Age: 47 Year
  Sex: Female

DRUGS (12)
  1. SOLIAN [Suspect]
     Active Substance: AMISULPRIDE
     Dosage: 800 MG, UNK
     Route: 065
     Dates: start: 20190829, end: 20190831
  2. TEMESTA (LORAZEPAM) [Suspect]
     Active Substance: LORAZEPAM
     Dosage: 5 MG, UNK
     Route: 065
     Dates: start: 20190823, end: 20190830
  3. TEMESTA (LORAZEPAM) [Suspect]
     Active Substance: LORAZEPAM
     Dosage: 2.5 MG, UNK
     Route: 065
     Dates: start: 20190904, end: 20190906
  4. SOLIAN [Suspect]
     Active Substance: AMISULPRIDE
     Indication: PRODUCT USED FOR UNKNOWN INDICATION
     Dosage: 600 MG, UNK
     Route: 065
     Dates: start: 20190831
  5. SOLIAN [Suspect]
     Active Substance: AMISULPRIDE
     Dosage: 600 MG, UNK
     Route: 065
     Dates: start: 20190822, end: 20190929
  6. ABILIFY [Suspect]
     Active Substance: ARIPIPRAZOLE
     Indication: PRODUCT USED FOR UNKNOWN INDICATION
     Dosage: 15 MG, UNK
     Route: 065
     Dates: start: 20190904, end: 20190906
  7. TEMESTA (LORAZEPAM) [Suspect]
     Active Substance: LORAZEPAM
     Dosage: 3.75 MG, UNK
     Route: 065
     Dates: start: 20190830, end: 20190831
  8. ABILIFY [Suspect]
     Active Substance: ARIPIPRAZOLE
     Dosage: 10 MG, UNK
     Route: 065
     Dates: start: 20190831, end: 20190903
  9. TEMESTA (LORAZEPAM) [Suspect]
     Active Substance: LORAZEPAM
     Indication: PRODUCT USED FOR UNKNOWN INDICATION
     Dosage: 1.25 MG, UNK
     Route: 065
     Dates: start: 20190906
  10. TEMESTA (LORAZEPAM) [Suspect]
     Active Substance: LORAZEPAM
     Dosage: 3.75 MG, UNK
     Route: 065
     Dates: start: 20190901, end: 20190904
  11. TEMESTA (LORAZEPAM) [Suspect]
     Active Substance: LORAZEPAM
     Dosage: 6.25 MG, UNK
     Route: 065
     Dates: start: 20190831, end: 20190901
  12. SOLIAN [Suspect]
     Active Substance: AMISULPRIDE
     Dosage: 400 MG, UNK
     Route: 065
     Dates: start: 20190822, end: 20190828

REACTIONS (2)
  - Myalgia [Recovered/Resolved]
  - Blood prolactin abnormal [Unknown]

NARRATIVE: CASE EVENT DATE: 20190906
